APPROVED DRUG PRODUCT: HYDROCHLOROTHIAZIDE
Active Ingredient: HYDROCHLOROTHIAZIDE
Strength: 25MG
Dosage Form/Route: TABLET;ORAL
Application: A040807 | Product #002
Applicant: IPCA LABORATORIES LTD
Approved: Jul 20, 2007 | RLD: No | RS: No | Type: DISCN